FAERS Safety Report 21804554 (Version 1)
Quarter: 2023Q1

REPORT INFORMATION
  Report Type: Spontaneous
  Country: US (occurrence: US)
  Receive Date: 20230102
  Receipt Date: 20230102
  Transmission Date: 20230417
  Serious: No
  Sender: FDA-Public Use
  Company Number: US-SA-SAC20221230000344

PATIENT
  Age: 79 Year
  Sex: Female

DRUGS (9)
  1. DUPIXENT [Suspect]
     Active Substance: DUPILUMAB
     Indication: Asthma
     Dosage: 200 MG, QOW
     Route: 058
     Dates: start: 20211021
  2. FISH OIL [Concomitant]
     Active Substance: FISH OIL
  3. FLUTICASONE [Concomitant]
     Active Substance: FLUTICASONE
  4. ALLOPURINOL [Concomitant]
     Active Substance: ALLOPURINOL
  5. FOLIC ACID [Concomitant]
     Active Substance: FOLIC ACID
  6. CYCLOBENZAPRINE [Concomitant]
     Active Substance: CYCLOBENZAPRINE
  7. CLOBETASOL [Concomitant]
     Active Substance: CLOBETASOL
  8. ALBUTEROL SULFATE [Concomitant]
     Active Substance: ALBUTEROL SULFATE
  9. ALPHA LIPOIC ACID [Concomitant]
     Active Substance: .ALPHA.-LIPOIC ACID

REACTIONS (1)
  - COVID-19 [Unknown]
